FAERS Safety Report 7013201-3 (Version None)
Quarter: 2010Q3

REPORT INFORMATION
  Report Type: 
  Country: None (occurrence: None)
  Receive Date: 20100924
  Receipt Date: 20100917
  Transmission Date: 20110219
  Serious: Yes (Hospitalization)
  Sender: FDA-Public Use
  Company Number: US-US-EMD SERONO, INC.-230118K08USA

PATIENT
  Sex: Female
  Weight: 47 kg

DRUGS (7)
  1. REBIF [Suspect]
     Indication: MULTIPLE SCLEROSIS
     Route: 058
     Dates: start: 20080801
  2. TYLENOL [Concomitant]
     Route: 065
  3. BIRTH CONTROL PILLS [Concomitant]
     Route: 065
  4. AMITRIPTYLINE HCL [Concomitant]
     Indication: MULTIPLE SCLEROSIS
     Route: 065
  5. BACLOFEN [Concomitant]
     Indication: MULTIPLE SCLEROSIS
     Route: 048
     Dates: start: 20080924
  6. PROTONIX [Concomitant]
     Indication: GASTROOESOPHAGEAL REFLUX DISEASE
     Route: 048
     Dates: start: 20080501
  7. IRON PILLS [Concomitant]
     Indication: IRON DEFICIENCY ANAEMIA

REACTIONS (3)
  - ANAEMIA [None]
  - HAEMATOCHEZIA [None]
  - MULTIPLE SCLEROSIS RELAPSE [None]
